FAERS Safety Report 9466142 (Version 1)
Quarter: 2013Q3

REPORT INFORMATION
  Report Type: Spontaneous
  Country: US (occurrence: US)
  Receive Date: 20130820
  Receipt Date: 20130820
  Transmission Date: 20140515
  Serious: No
  Sender: FDA-Public Use
  Company Number: US-PFIZER INC-2013240537

PATIENT
  Age: 52 Year
  Sex: Male
  Weight: 90.7 kg

DRUGS (3)
  1. LYRICA [Suspect]
     Indication: PAIN IN EXTREMITY
     Dosage: 75 MG, 1X/DAY
     Route: 048
     Dates: start: 201306, end: 201308
  2. HYDROCODONE W/ACETAMINOPHEN [Concomitant]
     Dosage: 10/325 MG, UNK
  3. SOMA [Concomitant]
     Dosage: 350 MG, 3X/DAY

REACTIONS (4)
  - Pain [Unknown]
  - Swelling [Unknown]
  - Gingival swelling [Unknown]
  - Loose tooth [Unknown]
